FAERS Safety Report 18882124 (Version 1)
Quarter: 2021Q1

REPORT INFORMATION
  Report Type: Spontaneous
  Country: US (occurrence: US)
  Receive Date: 20210212
  Receipt Date: 20210212
  Transmission Date: 20210420
  Serious: Yes (Other)
  Sender: FDA-Public Use
  Company Number: US-CADILA HEALTHCARE LIMITED-US-ZYDUS-061833

PATIENT

DRUGS (9)
  1. TACROLIMUS. [Suspect]
     Active Substance: TACROLIMUS
     Indication: GRAFT VERSUS HOST DISEASE
     Dosage: UNKNOWN
     Route: 065
  2. FLUDARABINE [Concomitant]
     Active Substance: FLUDARABINE PHOSPHATE
     Indication: PRODUCT USED FOR UNKNOWN INDICATION
  3. BUSULFAN. [Concomitant]
     Active Substance: BUSULFAN
     Indication: PRODUCT USED FOR UNKNOWN INDICATION
  4. RITUXIMAB. [Concomitant]
     Active Substance: RITUXIMAB
     Indication: CHRONIC GRAFT VERSUS HOST DISEASE
     Dosage: CYCLE 1
     Route: 042
     Dates: start: 20200406
  5. BUDESONIDE. [Suspect]
     Active Substance: BUDESONIDE
     Indication: CHRONIC GRAFT VERSUS HOST DISEASE
     Dosage: UNKNWON
     Route: 065
     Dates: start: 20200120, end: 20200401
  6. RITUXIMAB. [Concomitant]
     Active Substance: RITUXIMAB
     Dosage: CYCLE 2
     Route: 042
     Dates: start: 20200413
  7. CYCLOPHOSPHAMIDE. [Concomitant]
     Active Substance: CYCLOPHOSPHAMIDE
     Indication: PRODUCT USED FOR UNKNOWN INDICATION
     Dosage: UNK
  8. PREDNISONE. [Suspect]
     Active Substance: PREDNISONE
     Indication: CHRONIC GRAFT VERSUS HOST DISEASE
     Dosage: UNKNOWN
     Route: 065
     Dates: start: 20200127, end: 20200504
  9. RITUXIMAB. [Concomitant]
     Active Substance: RITUXIMAB
     Dosage: CYCLE 3
     Route: 042
     Dates: start: 20200420

REACTIONS (1)
  - Lymphopenia [Unknown]
